FAERS Safety Report 22289178 (Version 3)
Quarter: 2023Q2

REPORT INFORMATION
  Report Type: Spontaneous
  Country: US (occurrence: US)
  Receive Date: 20230505
  Receipt Date: 20230621
  Transmission Date: 20230722
  Serious: No
  Sender: FDA-Public Use
  Company Number: US-SA-SAC20230502001297

PATIENT
  Age: 11 Month
  Sex: Male
  Weight: 10 kg

DRUGS (5)
  1. DUPIXENT [Suspect]
     Active Substance: DUPILUMAB
     Indication: Dermatitis atopic
     Dosage: 200 MG Q4W
     Route: 058
     Dates: start: 20230421
  2. LEVOCABASTINE HYDROCHLORIDE [Concomitant]
     Active Substance: LEVOCABASTINE HYDROCHLORIDE
  3. TRIAMCINOLONE ACETONIDE [Concomitant]
     Active Substance: TRIAMCINOLONE ACETONIDE
  4. TACROLIMUS [Concomitant]
     Active Substance: TACROLIMUS
  5. MUPIROCIN [Concomitant]
     Active Substance: MUPIROCIN

REACTIONS (4)
  - Pyrexia [Not Recovered/Not Resolved]
  - Influenza [Not Recovered/Not Resolved]
  - Pruritus [Unknown]
  - Arthralgia [Unknown]

NARRATIVE: CASE EVENT DATE: 20230101
